FAERS Safety Report 9659387 (Version 2)
Quarter: 2013Q4

REPORT INFORMATION
  Report Type: Spontaneous
  Country: US (occurrence: US)
  Receive Date: 20131031
  Receipt Date: 20131226
  Transmission Date: 20140711
  Serious: Yes (Hospitalization)
  Sender: FDA-Public Use
  Company Number: US-JNJFOC-20131016263

PATIENT
  Sex: Male

DRUGS (9)
  1. INVEGA SUSTENNA [Suspect]
     Indication: PSYCHOTIC DISORDER
     Route: 030
  2. INVEGA SUSTENNA [Suspect]
     Indication: PSYCHOTIC DISORDER
     Route: 030
     Dates: start: 20130605
  3. INVEGA SUSTENNA [Suspect]
     Indication: PSYCHOTIC DISORDER
     Route: 030
     Dates: start: 20120625, end: 20130417
  4. INVEGA SUSTENNA [Suspect]
     Indication: PSYCHOTIC DISORDER
     Route: 030
     Dates: start: 20131016
  5. CLONAZEPAM [Concomitant]
     Indication: CONVULSION
     Route: 065
     Dates: start: 20131011
  6. CLONAZEPAM [Concomitant]
     Indication: CONVULSION
     Route: 065
     Dates: start: 20130318
  7. PROPRANOLOL [Concomitant]
     Indication: HYPERTENSION
     Route: 065
     Dates: start: 20131012
  8. PROPRANOLOL [Concomitant]
     Indication: HYPERTENSION
     Route: 065
     Dates: start: 20090316, end: 20090710
  9. PROPRANOLOL [Concomitant]
     Indication: HYPERTENSION
     Route: 065
     Dates: start: 20100719, end: 20120417

REACTIONS (3)
  - Physical assault [Recovered/Resolved]
  - Incorrect route of drug administration [Unknown]
  - Inappropriate schedule of drug administration [Unknown]
